FAERS Safety Report 16425460 (Version 5)
Quarter: 2023Q4

REPORT INFORMATION
  Report Type: Spontaneous
  Country: US (occurrence: US)
  Receive Date: 20190613
  Receipt Date: 20231228
  Transmission Date: 20240110
  Serious: Yes (Other)
  Sender: FDA-Public Use
  Company Number: US-GILEAD-2019-0413102

PATIENT
  Age: 60 Year
  Sex: Female
  Weight: 94.785 kg

DRUGS (29)
  1. VIREAD [Suspect]
     Active Substance: TENOFOVIR DISOPROXIL FUMARATE
     Indication: HIV infection
     Dosage: UNK
     Route: 048
     Dates: start: 2010, end: 20170901
  2. TYLENOL [Concomitant]
     Active Substance: ACETAMINOPHEN
  3. AMOXICILLIN [Concomitant]
     Active Substance: AMOXICILLIN
  4. ASPIRIN [Concomitant]
     Active Substance: ASPIRIN
  5. BACTRIM [Concomitant]
     Active Substance: SULFAMETHOXAZOLE\TRIMETHOPRIM
  6. HYDROCORTISONE [Concomitant]
     Active Substance: HYDROCORTISONE
  7. CELEBREX [Concomitant]
     Active Substance: CELECOXIB
  8. NEXIUM [Concomitant]
     Active Substance: ESOMEPRAZOLE MAGNESIUM
  9. PEPCID [Concomitant]
     Active Substance: FAMOTIDINE
  10. FLEET LAXATIVE [Concomitant]
  11. HEPARIN [Concomitant]
     Active Substance: HEPARIN SODIUM
  12. LEVOFLOXACIN [Concomitant]
     Active Substance: LEVOFLOXACIN
  13. PENICILLIN [Concomitant]
     Active Substance: PENICILLIN
  14. PREDNISOLONE [Concomitant]
     Active Substance: PREDNISOLONE
  15. PREDNISONE [Concomitant]
     Active Substance: PREDNISONE
  16. TRIAMCINOLONE [Concomitant]
     Active Substance: TRIAMCINOLONE
  17. VANCOMYCIN [Concomitant]
     Active Substance: VANCOMYCIN
  18. WARFARIN [Concomitant]
     Active Substance: WARFARIN
  19. COMBIVIR [Concomitant]
     Active Substance: LAMIVUDINE\ZIDOVUDINE
  20. EPIVIR [Concomitant]
     Active Substance: LAMIVUDINE
  21. EPZICOM [Concomitant]
     Active Substance: ABACAVIR SULFATE\LAMIVUDINE
  22. NORVIR [Concomitant]
     Active Substance: RITONAVIR
  23. PREZISTA [Concomitant]
     Active Substance: DARUNAVIR ETHANOLATE
  24. RETROVIR [Concomitant]
     Active Substance: ZIDOVUDINE
  25. REYATAZ [Concomitant]
     Active Substance: ATAZANAVIR SULFATE
  26. TIVICAY [Concomitant]
     Active Substance: DOLUTEGRAVIR SODIUM
  27. TRIUMEQ [Concomitant]
     Active Substance: ABACAVIR SULFATE\DOLUTEGRAVIR SODIUM\LAMIVUDINE
  28. VIRACEPT [Concomitant]
     Active Substance: NELFINAVIR MESYLATE
  29. CITALOPRAM [Concomitant]
     Active Substance: CITALOPRAM HYDROBROMIDE

REACTIONS (14)
  - Hip fracture [Recovered/Resolved]
  - Osteoporotic fracture [Unknown]
  - Osteonecrosis [Not Recovered/Not Resolved]
  - Fracture [Unknown]
  - Chronic kidney disease [Not Recovered/Not Resolved]
  - Renal failure [Not Recovered/Not Resolved]
  - Bone loss [Unknown]
  - Bone density decreased [Not Recovered/Not Resolved]
  - Anxiety [Unknown]
  - Insomnia [Not Recovered/Not Resolved]
  - Emotional distress [Unknown]
  - Anhedonia [Unknown]
  - Pain [Unknown]
  - Economic problem [Unknown]

NARRATIVE: CASE EVENT DATE: 20100101
